FAERS Safety Report 9263225 (Version 2)
Quarter: 2013Q3

REPORT INFORMATION
  Report Type: Spontaneous
  Country: IT (occurrence: IT)
  Receive Date: 20130430
  Receipt Date: 20130821
  Transmission Date: 20140515
  Serious: Yes (Other)
  Sender: FDA-Public Use
  Company Number: IT-PFIZER INC-2013126218

PATIENT
  Age: 69 Year
  Sex: Female

DRUGS (1)
  1. CISPLATINO TEVA [Suspect]
     Indication: OESOPHAGEAL SQUAMOUS CELL CARCINOMA
     Dosage: 44 MG, CYCLIC
     Route: 042
     Dates: start: 20130418, end: 20130418

REACTIONS (2)
  - Feeling hot [Unknown]
  - Dyspnoea [Unknown]
